FAERS Safety Report 8842919 (Version 1)
Quarter: 2012Q4

REPORT INFORMATION
  Report Type: 
  Country: BR (occurrence: BR)
  Receive Date: 20121016
  Receipt Date: 20121016
  Transmission Date: 20130627
  Serious: Yes (Hospitalization)
  Sender: FDA-Public Use
  Company Number: BR-ELI_LILLY_AND_COMPANY-BR201210000901

PATIENT
  Sex: Female
  Weight: 58 kg

DRUGS (10)
  1. CYMBALTA [Suspect]
     Indication: DEPRESSION
     Dosage: 30 mg, unknown
     Route: 048
     Dates: start: 2009
  2. CLOROQUINA                         /00001001/ [Concomitant]
     Dosage: UNK, unknown
     Route: 065
  3. MICOFENOLATO DE MOFETILA [Concomitant]
     Dosage: UNK, unknown
     Route: 065
  4. PROTOS [Concomitant]
     Dosage: UNK, unknown
     Route: 065
  5. ATACAND [Concomitant]
     Indication: HYPERTENSION
     Dosage: UNK, unknown
     Route: 065
  6. EUTHYROX [Concomitant]
     Indication: HYPOTHYROIDISM
     Dosage: UNK, unknown
     Route: 065
  7. COLECALCIFEROL [Concomitant]
  8. EPITEGEL [Concomitant]
     Dosage: UNK, unknown
     Route: 065
  9. MELOXICAM [Concomitant]
     Dosage: UNK, unknown
     Route: 065
  10. ANALGESICS [Concomitant]
     Dosage: UNK, unknown
     Route: 065

REACTIONS (2)
  - Nasal neoplasm [Recovering/Resolving]
  - Weight decreased [Recovering/Resolving]
